FAERS Safety Report 8543420-6 (Version None)
Quarter: 2012Q2

REPORT INFORMATION
  Report Type: 
  Country: None (occurrence: None)
  Receive Date: 20120412
  Receipt Date: 20090706
  Transmission Date: 20120825
  Serious: Yes (Other)
  Sender: FDA-Public Use
  Company Number: PHEH2006US13652

PATIENT
  Age: 74 Year
  Sex: Female

DRUGS (3)
  1. AREDIA [Suspect]
     Dates: start: 20031113
  2. CHEMOTHERAPEUTICS NOS (NO INGREDIENTS/SUBSTANCES) [Concomitant]
  3. ZOMETA [Suspect]
     Dates: start: 20030101

REACTIONS (18)
  - PAIN [None]
  - BREATH ODOUR [None]
  - OPEN WOUND [None]
  - BONE DISORDER [None]
  - ORAL PAIN [None]
  - TOOTH EXTRACTION [None]
  - BONE PAIN [None]
  - DECREASED INTEREST [None]
  - BONE DEBRIDEMENT [None]
  - STOMATITIS NECROTISING [None]
  - EMOTIONAL DISTRESS [None]
  - ANXIETY [None]
  - OSTEONECROSIS [None]
  - IMPAIRED HEALING [None]
  - HYPOPHAGIA [None]
  - DEFORMITY [None]
  - FACIAL PAIN [None]
  - GINGIVITIS [None]
